FAERS Safety Report 8006334-6 (Version None)
Quarter: 2011Q4

REPORT INFORMATION
  Report Type: 
  Country: None (occurrence: None)
  Receive Date: 20111226
  Receipt Date: 20111222
  Transmission Date: 20120403
  Serious: Yes (Death)
  Sender: FDA-Public Use
  Company Number: PHEH2011US012399

PATIENT
  Sex: Male

DRUGS (1)
  1. TOBI [Suspect]

REACTIONS (1)
  - DEATH [None]
